FAERS Safety Report 23605866 (Version 2)
Quarter: 2024Q3

REPORT INFORMATION
  Report Type: Spontaneous
  Country: CA (occurrence: CA)
  Receive Date: 20240307
  Receipt Date: 20240701
  Transmission Date: 20241016
  Serious: Yes (Death, Hospitalization, Other)
  Sender: DAIICHI
  Company Number: CA-AstraZeneca-2024A049671

PATIENT
  Age: 41 Year
  Sex: Female

DRUGS (1)
  1. TRASTUZUMAB DERUXTECAN [Suspect]
     Active Substance: TRASTUZUMAB DERUXTECAN
     Indication: HER2 positive breast cancer
     Dosage: 450 MG, ONCE EVERY 3 WK
     Route: 042

REACTIONS (2)
  - Pain [Fatal]
  - Intentional product misuse [Fatal]
